FAERS Safety Report 4397760-5 (Version None)
Quarter: 2004Q3

REPORT INFORMATION
  Report Type: 
  Country: None (occurrence: None)
  Receive Date: 20040713
  Receipt Date: 20040706
  Transmission Date: 20050211
  Serious: Yes (Life-Threatening, Other)
  Sender: FDA-Public Use
  Company Number: 200413328BCC

PATIENT
  Age: 15 Year
  Sex: Female
  Weight: 63.5036 kg

DRUGS (2)
  1. MIDOL MENSTRUAL COMPLETE [Suspect]
     Indication: DYSMENORRHOEA
     Dosage: ONCE, ORAL
     Route: 048
     Dates: start: 20040706
  2. TYLENOL [Suspect]
     Dates: start: 20040705

REACTIONS (3)
  - CARDIAC ARREST [None]
  - HUNGER [None]
  - OVERDOSE [None]
